FAERS Safety Report 20620544 (Version 1)
Quarter: 2022Q1

REPORT INFORMATION
  Report Type: Spontaneous
  Country: CN (occurrence: CN)
  Receive Date: 20220322
  Receipt Date: 20220322
  Transmission Date: 20220423
  Serious: Yes (Other)
  Sender: FDA-Public Use
  Company Number: CN-BAXTER-2022BAX006054

PATIENT
  Age: 57 Year
  Sex: Female
  Weight: 47 kg

DRUGS (13)
  1. CYCLOPHOSPHAMIDE [Suspect]
     Active Substance: CYCLOPHOSPHAMIDE
     Indication: Breast cancer female
     Dosage: FIRST CHEMOTHERAPY, INTRAVENOUS INJECTION OF CYCLOPHOSPHAMIDE FOR INJECTION (ENDOXAN CTX) + NS
     Route: 042
  2. CYCLOPHOSPHAMIDE [Suspect]
     Active Substance: CYCLOPHOSPHAMIDE
     Dosage: IV INJECTION OF CYCLOPHOSPHAMIDE FOR INJECTION (ENDOXAN CTX) 750 MG + NS 40ML, 2ND CHEMOTHERAPY
     Route: 042
     Dates: start: 20220119, end: 20220119
  3. CYCLOPHOSPHAMIDE [Suspect]
     Active Substance: CYCLOPHOSPHAMIDE
     Dosage: INTRAVENOUS INJECTION OF CYCLOPHOSPHAMIDE FOR INJECTION (ENDOXAN CTX) + NS, DOSE REINTRODUCED
     Route: 042
  4. SODIUM CHLORIDE [Suspect]
     Active Substance: SODIUM CHLORIDE
     Indication: Medication dilution
     Dosage: 1ST CHEMOTHERAPY, IV INJECTION (ENDOXAN CTX) + NS
     Route: 042
  5. SODIUM CHLORIDE [Suspect]
     Active Substance: SODIUM CHLORIDE
     Dosage: IV INJECTION (ENDOXAN CTX) 750 MG + NS 40ML, 2ND CHEMOTHERAPY
     Route: 042
     Dates: start: 20220119, end: 20220119
  6. SODIUM CHLORIDE [Suspect]
     Active Substance: SODIUM CHLORIDE
     Dosage: IV INJECTION (ENDOXAN CTX) + NS  DOSE REINTRODUCED
     Route: 042
  7. SODIUM CHLORIDE [Suspect]
     Active Substance: SODIUM CHLORIDE
     Dosage: 1ST CHEMOTHERAPY, IV GTT  EPIRUBICIN HYDROCHLORIDE FOR INJECTION (PHARMORUBICIN) + NS,
     Route: 041
  8. SODIUM CHLORIDE [Suspect]
     Active Substance: SODIUM CHLORIDE
     Dosage: IV GTT  EPIRUBICIN HYDROCHLORIDE FOR INJECTION (PHARMORUBICIN) 115 MG + NS 100ML, 2ND CHEMOTHERAPY
     Route: 041
     Dates: start: 20220119, end: 20220119
  9. SODIUM CHLORIDE [Suspect]
     Active Substance: SODIUM CHLORIDE
     Dosage: IV GTT  EPIRUBICIN HYDROCHLORIDE FOR INJECTION (PHARMORUBICIN) + NS, DOSE REINTRODUCED
     Route: 041
  10. EPIRUBICIN [Suspect]
     Active Substance: EPIRUBICIN
     Indication: Breast cancer female
     Dosage: IV GTT EPIRUBICIN HYDROCHLORIDE FOR INJECTION (PHARMORUBICIN) + NS, 1ST CHEMOTHERAPY
     Route: 041
  11. EPIRUBICIN [Suspect]
     Active Substance: EPIRUBICIN
     Dosage: IV GTT EPIRUBICIN HYDROCHLORIDE FOR INJECTION (PHARMORUBICIN) 115 MG + NS 100ML, 2ND CHEMOTHERAPY
     Route: 041
     Dates: start: 20220119, end: 20220119
  12. EPIRUBICIN [Suspect]
     Active Substance: EPIRUBICIN
     Dosage: IV GTT EPIRUBICIN HYDROCHLORIDE FOR INJECTION (PHARMORUBICIN)+ NS, DOSE REINTRODUCED
     Route: 041
  13. ANF-RHO [Concomitant]
     Active Substance: ANF-RHO
     Indication: Product used for unknown indication
     Route: 065
     Dates: start: 20220120

REACTIONS (2)
  - White blood cell count decreased [Recovering/Resolving]
  - Agranulocytosis [Recovering/Resolving]

NARRATIVE: CASE EVENT DATE: 20220126
